FAERS Safety Report 23211175 (Version 1)
Quarter: 2023Q4

REPORT INFORMATION
  Report Type: Spontaneous
  Country: US (occurrence: US)
  Receive Date: 20231121
  Receipt Date: 20231121
  Transmission Date: 20240110
  Serious: No
  Sender: FDA-Public Use
  Company Number: US-SA-SAC20231115001413

PATIENT
  Age: 41 Year
  Sex: Female

DRUGS (2)
  1. DUPIXENT [Suspect]
     Active Substance: DUPILUMAB
     Indication: Eczema
     Dosage: 2 PENS UNDER SKIN ON DAY 1
     Route: 058
     Dates: start: 20230929, end: 20230929
  2. DUPIXENT [Suspect]
     Active Substance: DUPILUMAB
     Dosage: 1 PEN ON DAY 15 ( DOSE WAS LATE BY 2 DAYS/UNKNOWN REASON; DOSE TAKEN ON: 10/16/2023) FOLLOWED BY 1 P
     Route: 058
     Dates: start: 20231016

REACTIONS (4)
  - Skin lesion [Recovered/Resolved]
  - Injection site irritation [Unknown]
  - Injection site pruritus [Unknown]
  - Rash [Not Recovered/Not Resolved]

NARRATIVE: CASE EVENT DATE: 20230101
